FAERS Safety Report 9637358 (Version 5)
Quarter: 2014Q1

REPORT INFORMATION
  Report Type: Report from Study
  Country: ZA (occurrence: ZA)
  Receive Date: 20131022
  Receipt Date: 20140106
  Transmission Date: 20141002
  Serious: Yes (Other)
  Sender: FDA-Public Use
  Company Number: PHHY2013ZA064157

PATIENT
  Age: 64 Year
  Sex: Female

DRUGS (2)
  1. GLIVEC [Suspect]
     Indication: GASTROINTESTINAL STROMAL TUMOUR
     Dosage: 400 MG
  2. ACLASTA [Suspect]
     Dosage: UNK UKN, UNK
     Route: 042

REACTIONS (7)
  - Lung cyst [Not Recovered/Not Resolved]
  - Pulmonary mass [Unknown]
  - Hair disorder [Unknown]
  - Periorbital oedema [Unknown]
  - Diarrhoea [Unknown]
  - Pruritus [Unknown]
  - Metastases to liver [Unknown]
